FAERS Safety Report 18871379 (Version 1)
Quarter: 2021Q1

REPORT INFORMATION
  Report Type: Spontaneous
  Country: US (occurrence: US)
  Receive Date: 20210210
  Receipt Date: 20210210
  Transmission Date: 20210420
  Serious: Yes (Other)
  Sender: FDA-Public Use
  Company Number: US-EMCURE PHARMACEUTICALS LTD-2021-EPL-000393

PATIENT
  Age: 52 Year
  Sex: Female

DRUGS (15)
  1. LORATIDINE [Concomitant]
     Active Substance: LORATADINE
     Dosage: 10 MILLIGRAM, EVERY MORNING
  2. POTASSIUM CHLORIDE. [Concomitant]
     Active Substance: POTASSIUM CHLORIDE
     Dosage: 10 MILLIEQUIVALENT PER DAY
  3. DIVALPROEX [Interacting]
     Active Substance: DIVALPROEX SODIUM
     Indication: POST-TRAUMATIC STRESS DISORDER
     Dosage: 500 MILLIGRAM PER DAY EVERY WEEK
  4. MONTELUKAST [Concomitant]
     Active Substance: MONTELUKAST SODIUM
     Dosage: 10 MILLIGRAM, QD
  5. ETANERCEPT [Concomitant]
     Active Substance: ETANERCEPT
     Indication: RHEUMATOID ARTHRITIS
  6. ZIPRASIDONE. [Concomitant]
     Active Substance: ZIPRASIDONE
     Dosage: 40 MILLIGRAM, QD, DURING WEEKS 12 TO 14
  7. RIFAMPIN. [Suspect]
     Active Substance: RIFAMPIN
     Indication: TUBERCULOSIS
     Dosage: 600 MILLIGRAM, DAILY X 4 MONTHS
  8. DIVALPROEX [Interacting]
     Active Substance: DIVALPROEX SODIUM
     Indication: BORDERLINE PERSONALITY DISORDER
     Dosage: 1000 MG EVERY MORNING, 1000 MG EVERY AFTERNOON, AND 1500 MG NIGHTLY
  9. DIVALPROEX [Interacting]
     Active Substance: DIVALPROEX SODIUM
     Indication: BIPOLAR DISORDER
     Dosage: 1500 MG EVERY EVENING (19.5 MG/KG/DAY)
  10. GABAPENTIN. [Concomitant]
     Active Substance: GABAPENTIN
     Dosage: 900 MILLIGRAM, TID
  11. FLUTICASONE. [Concomitant]
     Active Substance: FLUTICASONE
     Dosage: 2 NASAL SPRAY IN EACH NOSTRIL DAILY.
     Route: 045
  12. ALBUTEROL. [Concomitant]
     Active Substance: ALBUTEROL
     Dosage: 1 TO 2 PUFF EVERY 4 TO 6 HOURS AS NEEDED.
  13. BENZONATATE. [Concomitant]
     Active Substance: BENZONATATE
     Indication: UPPER RESPIRATORY TRACT INFECTION
     Dosage: UNK
  14. ACYCLOVIR. [Concomitant]
     Active Substance: ACYCLOVIR
     Dosage: 400 MILLIGRAM, BID
  15. LEVOTHYROXINE. [Concomitant]
     Active Substance: LEVOTHYROXINE
     Dosage: 25 MCG, QD

REACTIONS (2)
  - Drug interaction [Unknown]
  - Disease recurrence [Unknown]
